FAERS Safety Report 4390313-4 (Version None)
Quarter: 2004Q2

REPORT INFORMATION
  Report Type: 
  Country: None (occurrence: None)
  Receive Date: 20040630
  Receipt Date: 20040617
  Transmission Date: 20050107
  Serious: Yes (Life-Threatening, Other)
  Sender: FDA-Public Use
  Company Number: 200410281BYL

PATIENT
  Age: 65 Year
  Sex: Male
  Weight: 51 kg

DRUGS (12)
  1. ASPIRIN [Suspect]
     Indication: AGE INDETERMINATE MYOCARDIAL INFARCTION
     Dosage: 200 MG, TOTAL DAILY, ORAL
     Route: 048
     Dates: start: 20040423
  2. WARFARIN SODIUM [Suspect]
     Indication: CARDIAC DISORDER
     Dosage: 1 MG, QD, ORAL
     Route: 048
     Dates: start: 20040423, end: 20040526
  3. ALLOPURINOL [Suspect]
     Indication: HYPERURICAEMIA
     Dosage: 100 MG, QD, ORAL
     Route: 048
     Dates: start: 20040429, end: 20040518
  4. PANALDINE (TICLOPIDINE HYDROCHLORIDE) [Suspect]
     Indication: CORONARY ARTERIAL STENT INSERTION
     Dosage: 200 MG, TOTAL DAILY, ORAL
     Route: 048
     Dates: start: 20040421, end: 20040518
  5. ALDACTONE [Concomitant]
  6. LASIX [Concomitant]
  7. CARVEDILOL [Concomitant]
  8. PARIET [Concomitant]
  9. SELBEX [Concomitant]
  10. BIOFERMIN R [Concomitant]
  11. MEXITIL [Concomitant]
  12. RENIVACE [Concomitant]

REACTIONS (4)
  - AGRANULOCYTOSIS [None]
  - HYPERURICAEMIA [None]
  - PNEUMONIA [None]
  - RENAL FAILURE [None]
